FAERS Safety Report 5518691-0 (Version None)
Quarter: 2007Q4

REPORT INFORMATION
  Report Type: 
  Country: None (occurrence: None)
  Receive Date: 20071115
  Receipt Date: 20071107
  Transmission Date: 20080405
  Serious: Yes (Hospitalization, Other)
  Sender: FDA-Public Use
  Company Number: US-SHR-US-2007-041854

PATIENT
  Age: 57 Year
  Sex: Female
  Weight: 65.76 kg

DRUGS (25)
  1. CLIMARA [Suspect]
     Indication: MENOPAUSE
     Dosage: .05 MG/D
     Route: 062
     Dates: start: 19970314, end: 19970501
  2. CLIMARA [Suspect]
     Dosage: .1 MG/D, UNK
     Route: 062
     Dates: start: 19970522, end: 19990301
  3. PROPACET 100 [Concomitant]
     Dosage: UNK, UNK
  4. ALPRAZOLAM [Concomitant]
     Dosage: .25 MG, UNK
  5. DILTIA XT [Concomitant]
     Dosage: 180MG/24
     Dates: start: 19980110
  6. TRAZODONE HCL [Concomitant]
     Dosage: 50 MG, UNK
  7. CARAFATE [Concomitant]
     Dosage: 1 G, UNK
  8. PREVACID [Concomitant]
     Dosage: 30 MG, UNK
  9. BETOPTIC S [Concomitant]
     Dosage: .25 %, UNK
  10. PRILOSEC [Concomitant]
     Dosage: 20 MG, UNK
  11. ERYTHROMYCIN [Concomitant]
     Dosage: 400 MG, UNK
     Dates: start: 19970723
  12. ENDOTUSSIN [Concomitant]
     Dates: start: 19970723
  13. DOXYCYCLINE [Concomitant]
     Dosage: 100 MG, UNK
     Dates: start: 19970910
  14. PROCTOSOL-HC [Concomitant]
     Dosage: 2.5 %, UNK
     Dates: start: 19970910
  15. ANUSOL-HC                               /USA/ [Concomitant]
     Dates: start: 19971024
  16. CLIDINIUM [Concomitant]
     Dosage: 2.5/5
     Dates: start: 19971203
  17. TRIAMTERENE AND HYDROCHLOROTHIAZID ^HARRIS^ [Concomitant]
     Dosage: 37.5/25
     Dates: start: 19980110
  18. METRONIDAZOLE [Concomitant]
     Dosage: 250 MG, UNK
     Dates: start: 19980512
  19. CHLORDIAZEPOXIDE W/CLIDINIUM BROMIDE [Concomitant]
     Dosage: 5-2.5
     Dates: start: 19980626
  20. CIPRO [Concomitant]
     Dosage: 500 MG, UNK
     Dates: start: 19980909
  21. SULCRATE [Concomitant]
     Dates: start: 19981020
  22. DARVOCET [Concomitant]
  23. CELEBREX [Concomitant]
     Dosage: 200 MG, UNK
     Dates: start: 19990301
  24. ASPIRIN [Concomitant]
     Dosage: UNK, UNK
  25. HORMONES AND RELATED AGENTS [Suspect]
     Dates: start: 19770101

REACTIONS (5)
  - ANGINA PECTORIS [None]
  - BREAST CANCER IN SITU [None]
  - HEART RATE INCREASED [None]
  - HYPERTENSION [None]
  - MENOPAUSAL SYMPTOMS [None]
